FAERS Safety Report 24318801 (Version 2)
Quarter: 2024Q4

REPORT INFORMATION
  Report Type: Spontaneous
  Country: CN (occurrence: CN)
  Receive Date: 20240913
  Receipt Date: 20241001
  Transmission Date: 20250115
  Serious: Yes (Hospitalization)
  Sender: NOVARTIS
  Company Number: CN-002147023-NVSC2024CN183672

PATIENT
  Age: 34 Year
  Sex: Female

DRUGS (3)
  1. TEGRETOL [Suspect]
     Active Substance: CARBAMAZEPINE
     Indication: Product used for unknown indication
     Dosage: UNK, BID (HALF A TABLET)
     Route: 048
     Dates: start: 20240824, end: 20240828
  2. TEGRETOL [Suspect]
     Active Substance: CARBAMAZEPINE
     Dosage: 1 DOSAGE FORM, BID (1 TABLET)
     Route: 048
     Dates: start: 20240829, end: 20240904
  3. PIRACETAM [Concomitant]
     Active Substance: PIRACETAM
     Indication: Product used for unknown indication
     Dosage: UNK
     Route: 048

REACTIONS (14)
  - Rash [Recovering/Resolving]
  - Pruritus [Recovering/Resolving]
  - Mucosal ulceration [Recovering/Resolving]
  - Dysphagia [Unknown]
  - Vomiting [Unknown]
  - Off label use [Unknown]
  - Drug eruption [Recovering/Resolving]
  - Pyrexia [Recovering/Resolving]
  - Lip swelling [Recovering/Resolving]
  - Lip pain [Recovering/Resolving]
  - Oropharyngeal discomfort [Unknown]
  - Migraine [Unknown]
  - Vision blurred [Unknown]
  - Anxiety [Unknown]

NARRATIVE: CASE EVENT DATE: 20240824
